FAERS Safety Report 17466768 (Version 4)
Quarter: 2021Q1

REPORT INFORMATION
  Report Type: Report from Study
  Country: CA (occurrence: CA)
  Receive Date: 20200227
  Receipt Date: 20210305
  Transmission Date: 20210419
  Serious: Yes (Other)
  Sender: FDA-Public Use
  Company Number: NVSC2020CA052193

PATIENT
  Age: 79 Year
  Sex: Female

DRUGS (2)
  1. ACLASTA [Suspect]
     Active Substance: ZOLEDRONIC ACID
     Indication: OSTEOPENIA
     Dosage: UNK
     Route: 042
     Dates: start: 20210225
  2. ACLASTA [Suspect]
     Active Substance: ZOLEDRONIC ACID
     Indication: OSTEOPOROSIS
     Dosage: 5 MG, UNKNOWN
     Route: 042
     Dates: start: 20190215

REACTIONS (3)
  - Vascular access complication [Recovered/Resolved]
  - Femur fracture [Recovering/Resolving]
  - Vascular fragility [Recovered/Resolved]

NARRATIVE: CASE EVENT DATE: 20210225
